FAERS Safety Report 10052593 (Version 1)
Quarter: 2014Q1

REPORT INFORMATION
  Report Type: Spontaneous
  Country: US (occurrence: None)
  Receive Date: 20140331
  Receipt Date: 20140331
  Transmission Date: 20141002
  Serious: Yes (Hospitalization)
  Sender: FDA-Public Use
  Company Number: UTC-046278

PATIENT
  Age: 66 Year
  Sex: Female
  Weight: 72.57 kg

DRUGS (3)
  1. REMODULIN [Suspect]
     Indication: PRODUCT USED FOR UNKNOWN INDICATION
     Dosage: 36 UG/KG (0.025 UG/KG, 1 IN 1 MIN), SUBCUTANEOUS
     Route: 058
     Dates: start: 20090513
  2. ADCIRCA (TADALAFIL) (UNKNOWN) [Concomitant]
  3. TRACLEER (BOSENTAN) (UNKNOWN) [Concomitant]

REACTIONS (1)
  - Epistaxis [None]
